FAERS Safety Report 17047225 (Version 2)
Quarter: 2019Q4

REPORT INFORMATION
  Report Type: Spontaneous
  Country: US (occurrence: US)
  Receive Date: 20191119
  Receipt Date: 20191128
  Transmission Date: 20200122
  Serious: Yes (Hospitalization, Other)
  Sender: FDA-Public Use
  Company Number: US-DRREDDYS-USA/USA/19/0116371

PATIENT
  Age: 41 Year
  Sex: Male

DRUGS (1)
  1. DOXORUBICIN HYDROCHLORIDE LIPOSOME INJECTION 20 MG/10 ML (2 MG/ML) AND [Suspect]
     Active Substance: DOXORUBICIN HYDROCHLORIDE
     Indication: METASTASES TO LIVER
     Dosage: THE DRUG DOSES OF DOXORUBICIN WERE IN THE RANGE OF 50-75MG WITH 100-300MICRO M DRUG-ELUTING LC BEADS

REACTIONS (2)
  - Post embolisation syndrome [Unknown]
  - Hepatic necrosis [Recovering/Resolving]
